FAERS Safety Report 7079318-2 (Version None)
Quarter: 2010Q4

REPORT INFORMATION
  Report Type: 
  Country: None (occurrence: None)
  Receive Date: 20101102
  Receipt Date: 20091130
  Transmission Date: 20110411
  Serious: No
  Sender: FDA-Public Use
  Company Number: A0832267A

PATIENT
  Age: 53 Year
  Sex: Female

DRUGS (6)
  1. RYTHMOL SR [Suspect]
     Indication: ATRIAL FIBRILLATION
     Dosage: 225MG TWICE PER DAY
     Route: 048
     Dates: start: 20091109
  2. COUMADIN [Concomitant]
  3. FUROSEMIDE [Concomitant]
  4. DILTIAZEM [Concomitant]
  5. PRAVASTATIN [Concomitant]
  6. LEVOTHYROXINE [Concomitant]

REACTIONS (3)
  - FATIGUE [None]
  - LETHARGY [None]
  - OEDEMA [None]
